FAERS Safety Report 9370996 (Version 1)
Quarter: 2013Q2

REPORT INFORMATION
  Report Type: Spontaneous
  Country: CH (occurrence: CH)
  Receive Date: 20130627
  Receipt Date: 20130627
  Transmission Date: 20140414
  Serious: Yes (Hospitalization)
  Sender: FDA-Public Use
  Company Number: CH-ROCHE-1241747

PATIENT
  Age: 78 Year
  Sex: Female

DRUGS (8)
  1. BONVIVA [Suspect]
     Indication: PRODUCT USED FOR UNKNOWN INDICATION
     Route: 048
     Dates: start: 2005, end: 201301
  2. FOSAMAX [Suspect]
     Indication: PRODUCT USED FOR UNKNOWN INDICATION
     Route: 048
     Dates: start: 2004, end: 2005
  3. CALCIMAGON-D3 [Concomitant]
     Route: 065
  4. ELTROXIN [Concomitant]
     Route: 065
  5. ASPIRIN CARDIO [Concomitant]
     Route: 065
  6. INEGY [Concomitant]
     Dosage: 20/10MG
     Route: 065
  7. ATENOLOL + CHLORTHALIDONE [Concomitant]
     Dosage: 12.5 MG/50MG
     Route: 065
  8. BLOPRESS [Concomitant]
     Route: 065

REACTIONS (1)
  - Lower limb fracture [Recovered/Resolved]
